FAERS Safety Report 5578044-6 (Version None)
Quarter: 2007Q4

REPORT INFORMATION
  Report Type: 
  Country: None (occurrence: None)
  Receive Date: 20071231
  Receipt Date: 20071106
  Transmission Date: 20080405
  Serious: Yes (Other)
  Sender: FDA-Public Use
  Company Number: US-PURDUE-USA_2007_0030796

PATIENT
  Sex: Male
  Weight: 154 kg

DRUGS (5)
  1. OXYCONTIN [Suspect]
     Indication: PERIPHERAL SENSORY NEUROPATHY
     Dosage: 40 MG, SEE TEXT
     Dates: start: 19990501
  2. FUROSEMIDE [Concomitant]
     Indication: DRUG USE FOR UNKNOWN INDICATION
     Dosage: 40 MG, UNK
  3. CATAPRES-TTS-1 [Concomitant]
     Indication: DRUG USE FOR UNKNOWN INDICATION
     Dosage: UNK, SEE TEXT
     Route: 062
  4. LOTREL [Concomitant]
     Indication: DRUG USE FOR UNKNOWN INDICATION
     Dosage: UNK, SEE TEXT
  5. LEVAQUIN [Concomitant]
     Indication: DRUG USE FOR UNKNOWN INDICATION
     Dosage: 500 MG, UNK

REACTIONS (7)
  - ASTHENIA [None]
  - DISORIENTATION [None]
  - DRUG DEPENDENCE [None]
  - HALLUCINATION [None]
  - MOOD SWINGS [None]
  - TREMOR [None]
  - UPPER LIMB FRACTURE [None]
